FAERS Safety Report 25792405 (Version 1)
Quarter: 2025Q3

REPORT INFORMATION
  Report Type: Spontaneous
  Country: US (occurrence: US)
  Receive Date: 20250911
  Receipt Date: 20250911
  Transmission Date: 20251020
  Serious: Yes (Hospitalization)
  Sender: MYLAN
  Company Number: US-MYLANLABS-2025M1076410

PATIENT
  Age: 49 Year
  Sex: Male

DRUGS (53)
  1. ETOPOSIDE [Suspect]
     Active Substance: ETOPOSIDE
     Indication: Germ cell neoplasm
  2. ETOPOSIDE [Suspect]
     Active Substance: ETOPOSIDE
  3. ETOPOSIDE [Suspect]
     Active Substance: ETOPOSIDE
     Route: 065
  4. ETOPOSIDE [Suspect]
     Active Substance: ETOPOSIDE
     Route: 065
  5. ETOPOSIDE [Suspect]
     Active Substance: ETOPOSIDE
     Dates: start: 2021, end: 2021
  6. ETOPOSIDE [Suspect]
     Active Substance: ETOPOSIDE
     Dates: start: 2021, end: 2021
  7. ETOPOSIDE [Suspect]
     Active Substance: ETOPOSIDE
     Route: 065
     Dates: start: 2021, end: 2021
  8. ETOPOSIDE [Suspect]
     Active Substance: ETOPOSIDE
     Route: 065
     Dates: start: 2021, end: 2021
  9. ETOPOSIDE [Suspect]
     Active Substance: ETOPOSIDE
  10. ETOPOSIDE [Suspect]
     Active Substance: ETOPOSIDE
  11. ETOPOSIDE [Suspect]
     Active Substance: ETOPOSIDE
     Route: 065
  12. ETOPOSIDE [Suspect]
     Active Substance: ETOPOSIDE
     Route: 065
  13. ETOPOSIDE [Suspect]
     Active Substance: ETOPOSIDE
  14. ETOPOSIDE [Suspect]
     Active Substance: ETOPOSIDE
  15. ETOPOSIDE [Suspect]
     Active Substance: ETOPOSIDE
     Route: 065
  16. ETOPOSIDE [Suspect]
     Active Substance: ETOPOSIDE
     Route: 065
  17. ETOPOSIDE [Suspect]
     Active Substance: ETOPOSIDE
  18. ETOPOSIDE [Suspect]
     Active Substance: ETOPOSIDE
     Route: 048
  19. ETOPOSIDE [Suspect]
     Active Substance: ETOPOSIDE
  20. ETOPOSIDE [Suspect]
     Active Substance: ETOPOSIDE
     Route: 048
  21. BLEOMYCIN [Suspect]
     Active Substance: BLEOMYCIN SULFATE
     Indication: Germ cell neoplasm
  22. BLEOMYCIN [Suspect]
     Active Substance: BLEOMYCIN SULFATE
     Route: 065
  23. BLEOMYCIN [Suspect]
     Active Substance: BLEOMYCIN SULFATE
     Route: 065
  24. BLEOMYCIN [Suspect]
     Active Substance: BLEOMYCIN SULFATE
  25. CISPLATIN [Suspect]
     Active Substance: CISPLATIN
     Indication: Germ cell neoplasm
  26. CISPLATIN [Suspect]
     Active Substance: CISPLATIN
  27. CISPLATIN [Suspect]
     Active Substance: CISPLATIN
     Route: 065
  28. CISPLATIN [Suspect]
     Active Substance: CISPLATIN
     Route: 065
  29. CISPLATIN [Suspect]
     Active Substance: CISPLATIN
  30. CISPLATIN [Suspect]
     Active Substance: CISPLATIN
  31. CISPLATIN [Suspect]
     Active Substance: CISPLATIN
     Route: 065
  32. CISPLATIN [Suspect]
     Active Substance: CISPLATIN
     Route: 065
  33. IPILIMUMAB [Suspect]
     Active Substance: IPILIMUMAB
     Indication: Germ cell neoplasm
  34. IPILIMUMAB [Suspect]
     Active Substance: IPILIMUMAB
     Route: 065
  35. IPILIMUMAB [Suspect]
     Active Substance: IPILIMUMAB
     Route: 065
  36. IPILIMUMAB [Suspect]
     Active Substance: IPILIMUMAB
  37. IFOSFAMIDE [Concomitant]
     Active Substance: IFOSFAMIDE
     Indication: Germ cell neoplasm
  38. IFOSFAMIDE [Concomitant]
     Active Substance: IFOSFAMIDE
     Route: 065
  39. IFOSFAMIDE [Concomitant]
     Active Substance: IFOSFAMIDE
     Route: 065
  40. IFOSFAMIDE [Concomitant]
     Active Substance: IFOSFAMIDE
  41. PEMBROLIZUMAB [Concomitant]
     Active Substance: PEMBROLIZUMAB
     Indication: Germ cell neoplasm
  42. PEMBROLIZUMAB [Concomitant]
     Active Substance: PEMBROLIZUMAB
     Route: 065
  43. PEMBROLIZUMAB [Concomitant]
     Active Substance: PEMBROLIZUMAB
     Route: 065
  44. PEMBROLIZUMAB [Concomitant]
     Active Substance: PEMBROLIZUMAB
  45. CARBOPLATIN [Concomitant]
     Active Substance: CARBOPLATIN
     Indication: Germ cell neoplasm
  46. CARBOPLATIN [Concomitant]
     Active Substance: CARBOPLATIN
  47. CARBOPLATIN [Concomitant]
     Active Substance: CARBOPLATIN
     Route: 065
  48. CARBOPLATIN [Concomitant]
     Active Substance: CARBOPLATIN
     Route: 065
  49. CARBOPLATIN [Concomitant]
     Active Substance: CARBOPLATIN
  50. CARBOPLATIN [Concomitant]
     Active Substance: CARBOPLATIN
  51. CARBOPLATIN [Concomitant]
     Active Substance: CARBOPLATIN
     Route: 065
  52. CARBOPLATIN [Concomitant]
     Active Substance: CARBOPLATIN
     Route: 065
  53. NIVOLUMAB [Suspect]
     Active Substance: NIVOLUMAB

REACTIONS (3)
  - Drug ineffective for unapproved indication [Unknown]
  - Disease progression [Unknown]
  - Off label use [Unknown]

NARRATIVE: CASE EVENT DATE: 20210501
